FAERS Safety Report 5119011-6 (Version None)
Quarter: 2006Q3

REPORT INFORMATION
  Report Type: 
  Country: None (occurrence: None)
  Receive Date: 20060927
  Receipt Date: 20060914
  Transmission Date: 20061208
  Serious: Yes (Other)
  Sender: FDA-Public Use
  Company Number: 2006111632

PATIENT
  Age: 86 Year
  Sex: Female

DRUGS (5)
  1. DETROL [Suspect]
     Indication: URINARY INCONTINENCE
     Dates: end: 20060822
  2. NAMENDA [Concomitant]
  3. CELEXA [Concomitant]
  4. ARICEPT [Concomitant]
  5. ANTIHYPERTENSIVES (ANTIHYPERTENSIVES) [Concomitant]

REACTIONS (1)
  - LETHARGY [None]
